FAERS Safety Report 21855120 (Version 11)
Quarter: 2023Q2

REPORT INFORMATION
  Report Type: Spontaneous
  Country: CA (occurrence: CA)
  Receive Date: 20230112
  Receipt Date: 20230629
  Transmission Date: 20230722
  Serious: Yes (Other)
  Sender: FDA-Public Use
  Company Number: CA-PFIZER INC-PV202300005278

PATIENT
  Age: 61 Year
  Sex: Female
  Weight: 62.3 kg

DRUGS (23)
  1. RUXIENCE [Suspect]
     Active Substance: RITUXIMAB-PVVR
     Indication: Lymphoma
     Dosage: 600 MG
     Route: 042
  2. RUXIENCE [Suspect]
     Active Substance: RITUXIMAB-PVVR
     Dosage: 600 MG
     Route: 042
  3. RUXIENCE [Suspect]
     Active Substance: RITUXIMAB-PVVR
     Dosage: 600 MG
     Route: 042
     Dates: start: 20230109
  4. RUXIENCE [Suspect]
     Active Substance: RITUXIMAB-PVVR
     Dosage: 375 MG/M2
     Route: 042
     Dates: start: 20230109
  5. RUXIENCE [Suspect]
     Active Substance: RITUXIMAB-PVVR
     Dosage: 600 MG
     Route: 042
     Dates: start: 20230116
  6. RUXIENCE [Suspect]
     Active Substance: RITUXIMAB-PVVR
     Dosage: 600 MG
     Route: 042
     Dates: start: 20230116
  7. RUXIENCE [Suspect]
     Active Substance: RITUXIMAB-PVVR
     Dosage: 600 MG
     Route: 042
     Dates: start: 20230123
  8. RUXIENCE [Suspect]
     Active Substance: RITUXIMAB-PVVR
     Dosage: 600 MG
     Route: 042
     Dates: start: 20230123
  9. RUXIENCE [Suspect]
     Active Substance: RITUXIMAB-PVVR
     Dosage: 600 MG
     Route: 042
     Dates: start: 20230130
  10. RUXIENCE [Suspect]
     Active Substance: RITUXIMAB-PVVR
     Dosage: 600 MG
     Route: 042
     Dates: start: 20230130
  11. RUXIENCE [Suspect]
     Active Substance: RITUXIMAB-PVVR
     Dosage: 600 MG EVERY 4 WEEKS
     Route: 042
     Dates: start: 20230203
  12. RUXIENCE [Suspect]
     Active Substance: RITUXIMAB-PVVR
     Dosage: UNK
     Route: 042
     Dates: start: 20230221
  13. RUXIENCE [Suspect]
     Active Substance: RITUXIMAB-PVVR
     Dosage: 600 MG OMITTED 100 MG
     Route: 042
     Dates: start: 20230321
  14. RUXIENCE [Suspect]
     Active Substance: RITUXIMAB-PVVR
     Dosage: 500 MG (600 MG IN TOTAL WITH DIFFERENT LOT NUMBER)
     Route: 042
     Dates: start: 20230417
  15. RUXIENCE [Suspect]
     Active Substance: RITUXIMAB-PVVR
     Dosage: 500 MG (600 MG IN TOTAL WITH DIFFERENT LOT NUMBER)
     Route: 042
     Dates: start: 20230417
  16. ACETAMINOPHEN [Concomitant]
     Active Substance: ACETAMINOPHEN
     Indication: Premedication
     Dosage: 650 MG
  17. DIPHENHYDRAMINE [Concomitant]
     Active Substance: DIPHENHYDRAMINE
     Indication: Premedication
     Dosage: 50 MG
  18. HYDROCORTISONE [Concomitant]
     Active Substance: HYDROCORTISONE
     Indication: Premedication
     Dosage: 100 MG, AS NEEDED, IV PRN X 1
     Route: 042
  19. METHYLPREDNISOLONE [Concomitant]
     Active Substance: METHYLPREDNISOLONE
     Indication: Premedication
     Dosage: 100 MG
  20. MONTELUKAST [Concomitant]
     Active Substance: MONTELUKAST SODIUM
     Dosage: UNK
  21. OXYGEN [Concomitant]
     Active Substance: OXYGEN
     Indication: Premedication
     Dosage: 5-8 L
  22. RUPATADINE [Concomitant]
     Active Substance: RUPATADINE
     Dosage: UNK
  23. ALBUTEROL [Concomitant]
     Active Substance: ALBUTEROL
     Indication: Premedication
     Dosage: 2 PUFFS Q 4-6

REACTIONS (7)
  - Throat tightness [Recovered/Resolved]
  - Feeling cold [Recovered/Resolved]
  - Tremor [Recovered/Resolved]
  - Hypotension [Unknown]
  - Blood pressure decreased [Recovered/Resolved]
  - Off label use [Unknown]
  - Off label use [Unknown]

NARRATIVE: CASE EVENT DATE: 20230116
